FAERS Safety Report 10346975 (Version 1)
Quarter: 2014Q3

REPORT INFORMATION
  Report Type: Spontaneous
  Country: US (occurrence: US)
  Receive Date: 20140729
  Receipt Date: 20140729
  Transmission Date: 20150326
  Serious: No
  Sender: FDA-Public Use
  Company Number: US-009507513-1407USA005988

PATIENT
  Sex: Female

DRUGS (1)
  1. NEXPLANON [Suspect]
     Active Substance: ETONOGESTREL
     Indication: CONTRACEPTION
     Dosage: UNK, INSERTED IN HER UPPER LEFT ARM
     Route: 059
     Dates: start: 20140305

REACTIONS (2)
  - Device dislocation [Unknown]
  - Menorrhagia [Unknown]

NARRATIVE: CASE EVENT DATE: 20140305
